FAERS Safety Report 14396647 (Version 1)
Quarter: 2018Q1

REPORT INFORMATION
  Report Type: Spontaneous
  Country: US (occurrence: US)
  Receive Date: 20180116
  Receipt Date: 20180116
  Transmission Date: 20180509
  Serious: No
  Sender: FDA-Public Use
  Company Number: US-ALLERGAN-1758570US

PATIENT
  Age: 62 Year
  Sex: Female
  Weight: 63.49 kg

DRUGS (1)
  1. BOTOX COSMETIC [Suspect]
     Active Substance: ONABOTULINUMTOXINA
     Indication: SKIN WRINKLING
     Dosage: 15 UNITS, SINGLE
     Route: 030

REACTIONS (2)
  - Skin tightness [Not Recovered/Not Resolved]
  - Eyelid ptosis [Not Recovered/Not Resolved]
